FAERS Safety Report 14774225 (Version 1)
Quarter: 2018Q2

REPORT INFORMATION
  Report Type: Spontaneous
  Country: GB (occurrence: GB)
  Receive Date: 20180418
  Receipt Date: 20180418
  Transmission Date: 20180711
  Serious: Yes (Other)
  Sender: FDA-Public Use
  Company Number: GB-GLAXOSMITHKLINE-GB2018GSK066768

PATIENT
  Age: 67 Year
  Sex: Male

DRUGS (1)
  1. FLIXONASE AQUEOUS NASAL SPRAY [Suspect]
     Active Substance: FLUTICASONE PROPIONATE
     Indication: RHINORRHOEA
     Dosage: UNK

REACTIONS (1)
  - Respiratory tract infection [Unknown]
